FAERS Safety Report 24584048 (Version 1)
Quarter: 2024Q4

REPORT INFORMATION
  Report Type: Spontaneous
  Country: US (occurrence: None)
  Receive Date: 20241105
  Receipt Date: 20241105
  Transmission Date: 20250114
  Serious: No
  Sender: Public
  Company Number: None

PATIENT
  Age: 81 Year
  Sex: Female

DRUGS (1)
  1. OPSUMIT [Suspect]
     Active Substance: MACITENTAN
     Indication: Pulmonary hypertension
     Dosage: FREQUENCY : DAILY;?
     Route: 048
     Dates: start: 20170519, end: 20241021

REACTIONS (6)
  - Hypoxia [None]
  - Chronic respiratory failure [None]
  - Pulmonary congestion [None]
  - Metastatic neoplasm [None]
  - Pneumonia [None]
  - Hospice care [None]

NARRATIVE: CASE EVENT DATE: 20241031
